FAERS Safety Report 8161871 (Version 3)
Quarter: 2014Q4

REPORT INFORMATION
  Report Type: Spontaneous
  Country: US (occurrence: US)
  Receive Date: 20110929
  Receipt Date: 20141022
  Transmission Date: 20150529
  Serious: Yes (Death, Hospitalization, Other)
  Sender: FDA-Public Use
  Company Number: US-GLAXOSMITHKLINE-B0750970A

PATIENT
  Sex: Female
  Weight: 117 kg

DRUGS (1)
  1. AVANDIA [Suspect]
     Active Substance: ROSIGLITAZONE MALEATE
     Indication: DIABETES MELLITUS
     Dosage: 8 MG, UNK
     Route: 048
     Dates: start: 20000807, end: 20001109

REACTIONS (3)
  - Cardiac failure congestive [Fatal]
  - Hypertensive heart disease [Unknown]
  - Cardiomyopathy [Unknown]
